FAERS Safety Report 10235176 (Version 5)
Quarter: 2014Q3

REPORT INFORMATION
  Report Type: Report from Study
  Country: US (occurrence: US)
  Receive Date: 20140613
  Receipt Date: 20140903
  Transmission Date: 20150326
  Serious: Yes (Other)
  Sender: FDA-Public Use
  Company Number: US-BAYER-2014-085857

PATIENT
  Age: 59 Year
  Sex: Female

DRUGS (6)
  1. STIVARGA [Suspect]
     Active Substance: REGORAFENIB
     Indication: COLON CANCER
     Dosage: 40 MG, 4 TABLETS, DAILY
     Route: 048
     Dates: start: 20140527
  2. STIVARGA [Suspect]
     Active Substance: REGORAFENIB
     Indication: COLON CANCER
     Dosage: DAILY DOSE 40 MG
     Route: 048
     Dates: start: 20140728, end: 20140808
  3. STIVARGA [Suspect]
     Active Substance: REGORAFENIB
     Indication: COLON CANCER
     Dosage: 40 MG, 4 TABLETS, DAILY
     Route: 048
     Dates: end: 20140618
  4. STIVARGA [Suspect]
     Active Substance: REGORAFENIB
     Indication: COLON CANCER
     Dosage: 40 MG, BID
     Route: 048
     Dates: start: 20140716
  5. STIVARGA [Suspect]
     Active Substance: REGORAFENIB
     Indication: COLON CANCER
     Dosage: 2 TABLETS DAILY
     Route: 048
  6. STIVARGA [Suspect]
     Active Substance: REGORAFENIB
     Indication: COLON CANCER
     Dosage: UNK
     Dates: end: 20140813

REACTIONS (18)
  - Dysphagia [None]
  - Dysgeusia [None]
  - Tongue disorder [None]
  - Dysphonia [Not Recovered/Not Resolved]
  - Hypertension [None]
  - Drug intolerance [None]
  - Fatigue [None]
  - Pain in extremity [Not Recovered/Not Resolved]
  - Blister [None]
  - Hyperkeratosis [None]
  - Skin disorder [None]
  - Dry mouth [None]
  - Skin exfoliation [None]
  - Oedema peripheral [None]
  - Ovarian neoplasm [Not Recovered/Not Resolved]
  - Headache [None]
  - Bone pain [None]
  - Rash [None]

NARRATIVE: CASE EVENT DATE: 2014
